FAERS Safety Report 21582922 (Version 1)
Quarter: 2022Q4

REPORT INFORMATION
  Report Type: Other
  Country: US (occurrence: None)
  Receive Date: 20221111
  Receipt Date: 20221111
  Transmission Date: 20230112
  Serious: Yes (Other)
  Sender: FDA-Public Use
  Company Number: US-ROCHE-3213236

PATIENT
  Age: 52 Year
  Sex: Female
  Weight: 89.438 kg

DRUGS (21)
  1. OCREVUS [Suspect]
     Active Substance: OCRELIZUMAB
     Indication: Multiple sclerosis
     Dosage: YES, 300 MG, DAY 1 TO DAY 15, 31/OCT/2018
     Route: 042
  2. OCREVUS [Suspect]
     Active Substance: OCRELIZUMAB
     Indication: Secondary progressive multiple sclerosis
  3. PROVIGIL [Concomitant]
     Active Substance: MODAFINIL
     Indication: Multiple sclerosis
     Route: 048
     Dates: start: 2004
  4. PROVIGIL [Concomitant]
     Active Substance: MODAFINIL
     Indication: Fatigue
  5. BUPROPION HYDROCHLORIDE [Concomitant]
     Active Substance: BUPROPION HYDROCHLORIDE
     Indication: Depression
     Route: 048
     Dates: start: 202201
  6. CLONAZEPAM [Concomitant]
     Active Substance: CLONAZEPAM
     Indication: Anxiety
     Route: 048
     Dates: start: 2012
  7. FLAGYL [Concomitant]
     Active Substance: METRONIDAZOLE\METRONIDAZOLE HYDROCHLORIDE
     Indication: Diarrhoea
     Dosage: FOR 10 DAYS AS NEEDED FOR DIARRHEA ;ONGOING: YES
     Dates: start: 202012
  8. DICYCLOMINE [Concomitant]
     Active Substance: DICYCLOMINE HYDROCHLORIDE
     Indication: Diarrhoea
     Dosage: AS NEEDED FOR DIARRHEA ;ONGOING: YES
     Route: 048
     Dates: start: 202012
  9. VITAMIN D2 [Concomitant]
     Active Substance: ERGOCALCIFEROL
     Indication: Multiple sclerosis
     Route: 048
  10. GABAPENTIN [Concomitant]
     Active Substance: GABAPENTIN
     Indication: Insomnia
     Route: 048
     Dates: start: 2020
  11. DIPHENHYDRAMINE [Concomitant]
     Active Substance: DIPHENHYDRAMINE
     Indication: Insomnia
     Dosage: AT NIGHT ;ONGOING: YES
     Route: 048
     Dates: start: 2020
  12. BACLOFEN [Concomitant]
     Active Substance: BACLOFEN
     Indication: Muscle spasms
     Dosage: AS NEEDED ;ONGOING: YES
     Route: 048
     Dates: start: 2003
  13. RELPAX [Concomitant]
     Active Substance: ELETRIPTAN HYDROBROMIDE
     Indication: Migraine
     Dosage: AS NEEDED ;ONGOING: YES
     Route: 048
     Dates: start: 2004
  14. NITROFURANTOIN [Concomitant]
     Active Substance: NITROFURANTOIN
     Indication: Urinary tract infection
     Dosage: AS NEEDED ;ONGOING: YES
     Route: 048
     Dates: start: 2020
  15. PFIZER-BIONTECH COVID-19 VACCINE [Concomitant]
     Active Substance: TOZINAMERAN
     Indication: Immunisation
     Route: 030
     Dates: start: 202103, end: 202103
  16. PFIZER-BIONTECH COVID-19 VACCINE [Concomitant]
     Active Substance: TOZINAMERAN
     Route: 030
     Dates: start: 202104
  17. METOPROLOL SUCCINATE [Concomitant]
     Active Substance: METOPROLOL SUCCINATE
     Indication: Palpitations
     Route: 048
     Dates: start: 2020
  18. IMIQUIMOD [Concomitant]
     Active Substance: IMIQUIMOD
     Indication: Anogenital warts
     Dosage: YES
     Route: 061
     Dates: start: 2020
  19. METRONIDAZOLE [Concomitant]
     Active Substance: METRONIDAZOLE
     Indication: Bacterial vaginosis
     Route: 067
     Dates: start: 2020
  20. DIFLUCAN [Concomitant]
     Active Substance: FLUCONAZOLE
     Indication: Fungal infection
     Dosage: AS NEEDED ;ONGOING: YES
     Route: 048
     Dates: start: 2018
  21. DIFLUCAN [Concomitant]
     Active Substance: FLUCONAZOLE
     Dosage: AS NEEDED ;ONGOING: YES
     Route: 048
     Dates: start: 2018

REACTIONS (18)
  - Urinary retention [Unknown]
  - Nephrolithiasis [Not Recovered/Not Resolved]
  - Diarrhoea [Recovered/Resolved]
  - Decreased appetite [Not Recovered/Not Resolved]
  - Weight decreased [Not Recovered/Not Resolved]
  - Weight increased [Recovered/Resolved]
  - Bacterial vaginosis [Recovered/Resolved]
  - Anogenital warts [Not Recovered/Not Resolved]
  - Fungal infection [Not Recovered/Not Resolved]
  - Dermatitis [Not Recovered/Not Resolved]
  - Tinea pedis [Not Recovered/Not Resolved]
  - Bursitis [Not Recovered/Not Resolved]
  - Pollakiuria [Recovered/Resolved]
  - Nocturia [Recovered/Resolved]
  - Urinary incontinence [Recovered/Resolved]
  - COVID-19 [Recovered/Resolved]
  - Insomnia [Not Recovered/Not Resolved]
  - Immunodeficiency [Unknown]

NARRATIVE: CASE EVENT DATE: 20180101
